FAERS Safety Report 4513775-8 (Version None)
Quarter: 2004Q4

REPORT INFORMATION
  Report Type: 
  Country: None (occurrence: None)
  Receive Date: 20041130
  Receipt Date: 20041013
  Transmission Date: 20050328
  Serious: No
  Sender: FDA-Public Use
  Company Number: US-GLAXOSMITHKLINE-A0531025A

PATIENT
  Age: 39 Year
  Sex: Female
  Weight: 75.5 kg

DRUGS (1)
  1. WELLBUTRIN XL [Suspect]
     Indication: DEPRESSION
     Dosage: 150MG TWICE PER DAY
     Route: 048
     Dates: start: 20040927, end: 20041007

REACTIONS (3)
  - BRUXISM [None]
  - HEADACHE [None]
  - PAIN IN JAW [None]
